FAERS Safety Report 9486416 (Version 1)
Quarter: 2013Q3

REPORT INFORMATION
  Report Type: Spontaneous
  Country: US (occurrence: US)
  Receive Date: 20130829
  Receipt Date: 20130829
  Transmission Date: 20140515
  Serious: No
  Sender: FDA-Public Use
  Company Number: US-PFIZER INC-2013248422

PATIENT
  Age: 74 Year
  Sex: Female

DRUGS (7)
  1. ATORVASTATIN CALCIUM [Suspect]
     Dosage: UNK
  2. ASPIRIN [Suspect]
     Dosage: UNK
  3. ADVAIR DISKUS [Suspect]
     Dosage: UNK
  4. FLUVASTATIN SODIUM [Suspect]
     Dosage: UNK
  5. IODINE [Suspect]
     Dosage: UNK
  6. LIVALO [Suspect]
     Dosage: UNK
  7. PENTAZOCINE HCL/NALOXONE HCL [Suspect]
     Dosage: UNK

REACTIONS (1)
  - Drug hypersensitivity [Unknown]
